FAERS Safety Report 7185892-8 (Version None)
Quarter: 2010Q4

REPORT INFORMATION
  Report Type: 
  Country: None (occurrence: None)
  Receive Date: 20101222
  Receipt Date: 20101216
  Transmission Date: 20110411
  Serious: Yes (Death, Other)
  Sender: FDA-Public Use
  Company Number: US-BAXTER-2010BH030341

PATIENT
  Age: 65 Year
  Sex: Female

DRUGS (3)
  1. IFOSFAMIDE [Suspect]
     Indication: BREAST CANCER
     Route: 042
  2. MESNA [Suspect]
     Indication: BREAST CANCER
     Route: 065
  3. ETOPOSIDE [Suspect]
     Indication: BREAST CANCER
     Route: 042

REACTIONS (5)
  - BONE MARROW FAILURE [None]
  - DEATH [None]
  - DRUG TOXICITY [None]
  - NEUROTOXICITY [None]
  - PANCYTOPENIA [None]
